FAERS Safety Report 8815100 (Version 3)
Quarter: 2012Q4

REPORT INFORMATION
  Report Type: Report from Study
  Country: DE (occurrence: DE)
  Receive Date: 20120928
  Receipt Date: 20121105
  Transmission Date: 20130627
  Serious: Yes (Life-Threatening)
  Sender: FDA-Public Use
  Company Number: DE-JNJFOC-20120910808

PATIENT
  Age: 11 Year
  Sex: Male
  Weight: 27.5 kg

DRUGS (11)
  1. REMICADE [Suspect]
     Indication: CROHN^S DISEASE
     Route: 042
     Dates: start: 20120419
  2. REMICADE [Suspect]
     Indication: CROHN^S DISEASE
     Route: 042
     Dates: start: 20120918
  3. 5-ASA [Concomitant]
     Route: 048
  4. METHOTREXATE [Concomitant]
  5. PROBIOTICS [Concomitant]
  6. VITAMIN D [Concomitant]
  7. VITAMIN B12 [Concomitant]
  8. POTASSIUM [Concomitant]
  9. MAGNESIUM [Concomitant]
  10. SELEN [Concomitant]
  11. NATRIUMHYDROGENCARBONATE [Concomitant]

REACTIONS (2)
  - Anaphylactic reaction [Recovered/Resolved]
  - Infusion related reaction [Recovered/Resolved]
